FAERS Safety Report 7236282-0 (Version None)
Quarter: 2011Q1

REPORT INFORMATION
  Report Type: 
  Country: None (occurrence: None)
  Receive Date: 20110120
  Receipt Date: 20110113
  Transmission Date: 20110831
  Serious: Yes (Hospitalization)
  Sender: FDA-Public Use
  Company Number: US-MERCK-1010USA02444

PATIENT
  Age: 58 Year
  Sex: Female
  Weight: 77 kg

DRUGS (20)
  1. ALOXI [Concomitant]
     Route: 065
     Dates: start: 20101015, end: 20101015
  2. EMEND [Suspect]
     Route: 048
     Dates: start: 20101002
  3. DECADRON [Concomitant]
     Indication: PROPHYLAXIS OF NAUSEA AND VOMITING
     Route: 042
     Dates: start: 20100910
  4. EMEND [Suspect]
     Route: 048
     Dates: start: 20100912
  5. EMEND [Suspect]
     Route: 048
     Dates: start: 20101015
  6. CYTOXAN [Concomitant]
     Indication: NEOPLASM MALIGNANT
     Route: 042
     Dates: start: 20100910
  7. CYTOXAN [Concomitant]
     Route: 042
     Dates: start: 20101015, end: 20101015
  8. EMEND [Suspect]
     Indication: PROPHYLAXIS OF NAUSEA AND VOMITING
     Route: 048
     Dates: start: 20100910
  9. EMEND [Suspect]
     Route: 048
     Dates: start: 20100911
  10. EMEND [Suspect]
     Route: 048
     Dates: start: 20101016
  11. DECADRON [Concomitant]
     Route: 042
     Dates: start: 20101015, end: 20101018
  12. EMEND [Suspect]
     Route: 048
     Dates: start: 20101017, end: 20101017
  13. CYTOXAN [Concomitant]
     Route: 042
     Dates: start: 20101001
  14. ALOXI [Concomitant]
     Route: 065
     Dates: start: 20101001
  15. BENADRYL [Concomitant]
     Route: 042
     Dates: start: 20100910
  16. EMEND [Suspect]
     Route: 048
     Dates: start: 20101001
  17. EMEND [Suspect]
     Route: 048
     Dates: start: 20101003
  18. TAXOTERE [Concomitant]
     Indication: NEOPLASM MALIGNANT
     Route: 042
     Dates: start: 20100910, end: 20100910
  19. DECADRON [Concomitant]
     Route: 042
     Dates: start: 20101001
  20. ALOXI [Concomitant]
     Indication: PROPHYLAXIS OF NAUSEA AND VOMITING
     Route: 065
     Dates: start: 20100910

REACTIONS (8)
  - ATRIAL FLUTTER [None]
  - VOMITING [None]
  - DEHYDRATION [None]
  - SENSATION OF HEAVINESS [None]
  - SYNCOPE [None]
  - FATIGUE [None]
  - NAUSEA [None]
  - HYPOTENSION [None]
